FAERS Safety Report 8371348-3 (Version None)
Quarter: 2012Q2

REPORT INFORMATION
  Report Type: 
  Country: None (occurrence: None)
  Receive Date: 20120517
  Receipt Date: 20120508
  Transmission Date: 20120825
  Serious: Yes (Disabling)
  Sender: FDA-Public Use
  Company Number: 2012-2011

PATIENT
  Age: 61 Year
  Sex: Female
  Weight: 46 kg

DRUGS (8)
  1. VELETRI (EPOPROSTENOL SODIUM) [Concomitant]
  2. WARFARIN SODIUM [Concomitant]
  3. TIAZAC [Concomitant]
  4. DYSPORT [Suspect]
     Indication: OFF LABEL USE
     Dosage: 80 UNITS (80 UNITS, SINGLE CYCLE), INTRAMUSCULAR
     Route: 030
     Dates: start: 20120326, end: 20120326
  5. DYSPORT [Suspect]
     Indication: SKIN WRINKLING
     Dosage: 80 UNITS (80 UNITS, SINGLE CYCLE), INTRAMUSCULAR
     Route: 030
     Dates: start: 20120326, end: 20120326
  6. REVATIO [Concomitant]
  7. MULTIVITAMIN [Concomitant]
  8. ASPIRIN [Concomitant]

REACTIONS (1)
  - VIITH NERVE PARALYSIS [None]
